FAERS Safety Report 5010623-7 (Version None)
Quarter: 2006Q2

REPORT INFORMATION
  Report Type: 
  Country: None (occurrence: None)
  Receive Date: 20060525
  Receipt Date: 20060522
  Transmission Date: 20061013
  Serious: Yes (Death, Hospitalization)
  Sender: FDA-Public Use
  Company Number: CN-BRISTOL-MYERS SQUIBB COMPANY-13384177

PATIENT
  Age: 60 Year
  Sex: Male

DRUGS (1)
  1. CAPTOPRIL TABS 12.5 MG [Suspect]
     Indication: HYPERTENSION
     Dosage: ON 13-FEB-2006, ADMININTERED CAPTOPRIL 6.25 MG BUCCAL SUBLINGUALLY
     Route: 048
     Dates: end: 20060213

REACTIONS (7)
  - CHEST DISCOMFORT [None]
  - DEATH [None]
  - DIZZINESS [None]
  - HEADACHE [None]
  - HYPERTENSION [None]
  - NAUSEA [None]
  - VOMITING [None]
